FAERS Safety Report 22351905 (Version 1)
Quarter: 2023Q2

REPORT INFORMATION
  Report Type: Spontaneous
  Country: FR (occurrence: FR)
  Receive Date: 20230522
  Receipt Date: 20230522
  Transmission Date: 20230722
  Serious: Yes (Other)
  Sender: FDA-Public Use
  Company Number: FR-ORGANON-O2305FRA001566

PATIENT
  Sex: Female

DRUGS (2)
  1. SINEMET [Suspect]
     Active Substance: CARBIDOPA\LEVODOPA
     Dosage: HALF A TABLET IN THE MORNING AND AT NOON, THEN 2 TABLETS IN THE EVENING
     Route: 048
     Dates: start: 202301
  2. SINEMET [Suspect]
     Active Substance: CARBIDOPA\LEVODOPA
     Dosage: FOR 8 YEARS
     Route: 048

REACTIONS (5)
  - Renal neoplasm [Recovered/Resolved]
  - Myalgia [Unknown]
  - Chest pain [Unknown]
  - Phlebitis [Unknown]
  - Product prescribing issue [Unknown]
